FAERS Safety Report 13939906 (Version 1)
Quarter: 2017Q3

REPORT INFORMATION
  Report Type: Spontaneous
  Country: US (occurrence: US)
  Receive Date: 20170906
  Receipt Date: 20170906
  Transmission Date: 20171127
  Serious: No
  Sender: FDA-Public Use
  Company Number: US-PFIZER INC-2017384695

PATIENT
  Age: 56 Year
  Sex: Male
  Weight: 90.72 kg

DRUGS (12)
  1. GABAPENTIN. [Concomitant]
     Active Substance: GABAPENTIN
     Indication: MULTIPLE SCLEROSIS
     Dosage: 800 MG, EVERY 6 HOURS
  2. BACLOFEN. [Concomitant]
     Active Substance: BACLOFEN
     Indication: MUSCLE RELAXANT THERAPY
     Dosage: 20 MG, 3X/DAY EVERY 8 HOURS
  3. LISINOPRIL. [Concomitant]
     Active Substance: LISINOPRIL
     Indication: HYPERTENSION
     Dosage: UNK, 1X/DAY
  4. MORPHINE [Concomitant]
     Active Substance: MORPHINE
     Indication: LIMB DISCOMFORT
  5. LYRICA [Suspect]
     Active Substance: PREGABALIN
     Indication: NEURALGIA
  6. TECFIDERA [Concomitant]
     Active Substance: DIMETHYL FUMARATE
     Indication: MULTIPLE SCLEROSIS
     Dosage: 240 MG, 2X/DAY
  7. MORPHINE [Concomitant]
     Active Substance: MORPHINE
     Indication: SPINAL DISORDER
     Dosage: 30 MG, 2 TIMES A DAY TIME RELEASE
  8. LYRICA [Suspect]
     Active Substance: PREGABALIN
     Indication: MULTIPLE SCLEROSIS
     Dosage: 1 DOSE IN THE MORNING AND 2 DOSES IN THE EVENING
     Route: 048
  9. GABAPENTIN. [Concomitant]
     Active Substance: GABAPENTIN
     Indication: HYPOAESTHESIA
     Dosage: 400 MG A DAY FOR THE FIRST WEEK AND THE FIRST TWO WEEKS
  10. GABAPENTIN. [Concomitant]
     Active Substance: GABAPENTIN
     Indication: PARAESTHESIA
     Dosage: 400 MG A DAY FOR THE SECOND TWO
  11. DULOXETINE. [Concomitant]
     Active Substance: DULOXETINE
     Indication: FEELING ABNORMAL
     Dosage: 30 MG, 3X/DAY
  12. TECFIDERA [Concomitant]
     Active Substance: DIMETHYL FUMARATE
     Indication: CENTRAL NERVOUS SYSTEM LESION

REACTIONS (1)
  - Euphoric mood [Recovering/Resolving]
